FAERS Safety Report 24444926 (Version 2)
Quarter: 2024Q4

REPORT INFORMATION
  Report Type: Report from Study
  Country: US (occurrence: US)
  Receive Date: 20241016
  Receipt Date: 20241017
  Transmission Date: 20250115
  Serious: No
  Sender: ROCHE
  Company Number: US-ROCHE-2990298

PATIENT
  Age: 50 Year
  Sex: Female

DRUGS (11)
  1. RITUXAN [Suspect]
     Active Substance: RITUXIMAB
     Indication: Multiple sclerosis
     Dosage: DATE OF SERVICE-14/JUN/2021, 28/JUN/2021, 22/DEC/2021, 20/JUL/2022,  17/JAN/2023, 16/JUN/2023,18/DEC
     Route: 065
  2. RITUXAN [Suspect]
     Active Substance: RITUXIMAB
     Indication: Sarcoidosis
     Route: 065
  3. XANAX [Concomitant]
     Active Substance: ALPRAZOLAM
  4. NORVASC [Concomitant]
     Active Substance: AMLODIPINE BESYLATE
  5. LIORESAL [Concomitant]
     Active Substance: BACLOFEN
  6. CARBATROL [Concomitant]
     Active Substance: CARBAMAZEPINE
  7. VOLTAREN [Concomitant]
     Active Substance: DICLOFENAC SODIUM
  8. NEURONTIN [Concomitant]
     Active Substance: GABAPENTIN
  9. COZAAR [Concomitant]
     Active Substance: LOSARTAN POTASSIUM
  10. ALEVE [Concomitant]
     Active Substance: NAPROXEN SODIUM
  11. THYROID [Concomitant]
     Active Substance: LEVOTHYROXINE\LIOTHYRONINE

REACTIONS (2)
  - Off label use [Unknown]
  - No adverse event [Unknown]
